FAERS Safety Report 23274189 (Version 3)
Quarter: 2024Q2

REPORT INFORMATION
  Report Type: Report from Study
  Country: US (occurrence: US)
  Receive Date: 20231208
  Receipt Date: 20240506
  Transmission Date: 20240716
  Serious: No
  Sender: FDA-Public Use
  Company Number: US-AstraZeneca-CH-00523511A

PATIENT
  Sex: Male

DRUGS (1)
  1. ULTOMIRIS [Suspect]
     Active Substance: RAVULIZUMAB-CWVZ
     Indication: Product used for unknown indication
     Dosage: UNK, EVERY EIGHT WEEKS
     Route: 065

REACTIONS (3)
  - Muscular weakness [Unknown]
  - Eyelid ptosis [Unknown]
  - Therapeutic response shortened [Unknown]
